FAERS Safety Report 20145324 (Version 1)
Quarter: 2021Q4

REPORT INFORMATION
  Report Type: Spontaneous
  Country: US (occurrence: None)
  Receive Date: 20211130
  Receipt Date: 20211130
  Transmission Date: 20220303
  Serious: Yes (Disabling)
  Sender: FDA-Public Use
  Company Number: None

PATIENT
  Age: 52 Year
  Sex: Female

DRUGS (2)
  1. SERTRALINE [Suspect]
     Active Substance: SERTRALINE HYDROCHLORIDE
     Indication: Depression
     Dosage: OTHER QUANTITY : 1 TABLET(S);?
     Route: 048
     Dates: start: 20211022, end: 20211109
  2. SERTRALINE [Suspect]
     Active Substance: SERTRALINE HYDROCHLORIDE
     Indication: Anxiety

REACTIONS (9)
  - Malaise [None]
  - Palpitations [None]
  - Anxiety [None]
  - Panic attack [None]
  - Myalgia [None]
  - Alopecia [None]
  - Urticaria [None]
  - Lip swelling [None]
  - Near death experience [None]

NARRATIVE: CASE EVENT DATE: 20211125
